FAERS Safety Report 4624770-2 (Version None)
Quarter: 2005Q1

REPORT INFORMATION
  Report Type: 
  Country: None (occurrence: None)
  Receive Date: 20050107
  Receipt Date: 20041111
  Transmission Date: 20050727
  Serious: No
  Sender: FDA-Public Use
  Company Number: 230194M04USA

PATIENT
  Age: 44 Year
  Sex: Male

DRUGS (1)
  1. REBIF [Suspect]
     Indication: MULTIPLE SCLEROSIS
     Dosage: 22 MCG, 3 IN 1 WEEK, NOT
     Dates: start: 20041021

REACTIONS (2)
  - HEADACHE [None]
  - INSOMNIA [None]
